FAERS Safety Report 8989772 (Version 2)
Quarter: 2013Q1

REPORT INFORMATION
  Report Type: Report from Study
  Country: US (occurrence: US)
  Receive Date: 20121228
  Receipt Date: 20130211
  Transmission Date: 20140127
  Serious: Yes (Hospitalization)
  Sender: FDA-Public Use
  Company Number: US-UCBSA-073736

PATIENT
  Age: 8 Year
  Sex: 0

DRUGS (4)
  1. LACOSAMIDE [Suspect]
     Indication: PARTIAL SEIZURES
     Route: 048
  2. LACOSAMIDE [Suspect]
     Indication: PARTIAL SEIZURES
     Route: 048
     Dates: start: 20121029, end: 20121213
  3. LACOSAMIDE [Suspect]
     Indication: PARTIAL SEIZURES
     Dosage: UNKNOWN
     Route: 048
  4. LAMICTAL [Concomitant]
     Indication: CONVULSION
     Route: 048

REACTIONS (1)
  - Convulsion [Recovered/Resolved]
